FAERS Safety Report 9393262 (Version 3)
Quarter: 2014Q1

REPORT INFORMATION
  Report Type: Spontaneous
  Country: GB (occurrence: GB)
  Receive Date: 20130710
  Receipt Date: 20140130
  Transmission Date: 20141002
  Serious: Yes (Life-Threatening)
  Sender: FDA-Public Use
  Company Number: GB-PFIZER INC-2013199899

PATIENT
  Age: 91 Year
  Sex: 0

DRUGS (5)
  1. PIPERACILLIN/TAZOBACTAM [Suspect]
     Dosage: 4.5 G, 3X/DAY
     Route: 041
     Dates: start: 20110625, end: 20110701
  2. CEFUROXIME [Suspect]
     Dosage: 1.5 G, DAILY
     Route: 041
     Dates: start: 20110609, end: 20110609
  3. CIPROFLOXACIN HCL [Suspect]
     Indication: PSEUDOMONAS INFECTION
     Dosage: 1000 MG, DAILY
     Route: 048
     Dates: start: 20110617, end: 20110621
  4. GENTAMICIN [Suspect]
     Dosage: 80MG/2ML STAT DOSE
     Route: 041
     Dates: start: 20110622, end: 20110622
  5. GENTAMICIN [Suspect]
     Dosage: 80MG/2ML STAT DOSE
     Route: 041
     Dates: start: 20110624, end: 20110624

REACTIONS (1)
  - Clostridium difficile infection [Unknown]
